FAERS Safety Report 5103715-5 (Version None)
Quarter: 2006Q3

REPORT INFORMATION
  Report Type: 
  Country: None (occurrence: None)
  Receive Date: 20060911
  Receipt Date: 20060911
  Transmission Date: 20061208
  Serious: Yes (Life-Threatening)
  Sender: FDA-Public Use
  Company Number: None

PATIENT
  Age: 60 Year
  Sex: Female
  Weight: 63.5036 kg

DRUGS (1)
  1. ACTONEL [Suspect]
     Indication: OSTEOPOROSIS
     Dosage: 35 MG 1XDAY

REACTIONS (5)
  - BONE NEOPLASM [None]
  - BREAST CANCER FEMALE [None]
  - CARBOHYDRATE ANTIGEN 27.29 INCREASED [None]
  - DISEASE RECURRENCE [None]
  - HEPATIC NEOPLASM MALIGNANT RECURRENT [None]
